FAERS Safety Report 22221072 (Version 5)
Quarter: 2024Q2

REPORT INFORMATION
  Report Type: Report from Study
  Country: CO (occurrence: CO)
  Receive Date: 20230418
  Receipt Date: 20240430
  Transmission Date: 20240716
  Serious: Yes (Hospitalization, Other)
  Sender: FDA-Public Use
  Company Number: CO-002147023-PHHY2019CO159244

PATIENT
  Age: 3 Year
  Sex: Male
  Weight: 12 kg

DRUGS (4)
  1. ILARIS [Suspect]
     Active Substance: CANAKINUMAB
     Indication: Still^s disease
     Dosage: 70 MG, QMO
     Route: 058
     Dates: start: 20170622
  2. ILARIS [Suspect]
     Active Substance: CANAKINUMAB
     Indication: Multisystem inflammatory syndrome in children
     Dosage: 75 MG, QMO, STOPPED ONE YEAR AGO
     Route: 058
     Dates: start: 20181128
  3. ILARIS [Suspect]
     Active Substance: CANAKINUMAB
     Indication: Chronic infantile neurological cutaneous and articular syndrome
     Dosage: UNK
     Route: 058
     Dates: start: 20190523
  4. ILARIS [Suspect]
     Active Substance: CANAKINUMAB
     Dosage: UNK, QMO
     Route: 058

REACTIONS (11)
  - Still^s disease [Unknown]
  - Mobility decreased [Unknown]
  - Headache [Unknown]
  - Malaise [Unknown]
  - Seizure [Unknown]
  - Gait disturbance [Not Recovered/Not Resolved]
  - Bone pain [Not Recovered/Not Resolved]
  - Pyrexia [Recovering/Resolving]
  - Arthralgia [Recovering/Resolving]
  - Vomiting [Unknown]
  - Prescribed overdose [Unknown]

NARRATIVE: CASE EVENT DATE: 20190703
